FAERS Safety Report 6382800-4 (Version None)
Quarter: 2009Q3

REPORT INFORMATION
  Report Type: 
  Country: None (occurrence: None)
  Receive Date: 20090930
  Receipt Date: 20090923
  Transmission Date: 20100115
  Serious: Yes (Hospitalization, Other)
  Sender: FDA-Public Use
  Company Number: GB-WYE-G04347109

PATIENT
  Sex: Male

DRUGS (15)
  1. GEMTUZUMAB OZOGAMICIN [Suspect]
     Indication: ACUTE MYELOID LEUKAEMIA
     Dosage: 5MG GIVEN OVER 2 HOURS
     Route: 042
     Dates: start: 20090810
  2. DOMPERIDONE [Concomitant]
     Route: 048
  3. SIMVASTATIN [Concomitant]
     Route: 048
  4. RAMIPRIL [Concomitant]
     Route: 048
  5. FUROSEMIDE [Concomitant]
     Route: 048
  6. ACYCLOVIR [Concomitant]
     Route: 048
  7. FLUCONAZOLE [Concomitant]
     Route: 048
  8. PREDNISOLONE [Concomitant]
     Indication: GOUT
     Route: 048
  9. PARACETAMOL [Concomitant]
     Indication: PYREXIA
     Dosage: 500 MG EVERY 1 PRN
     Route: 048
  10. LANSOPRAZOLE [Concomitant]
     Route: 048
  11. DIGOXIN [Concomitant]
     Route: 048
  12. CHLORAMPHENICOL [Concomitant]
     Dosage: 1-2 DROPS FOUR TIMES A DAY
     Route: 031
  13. CODEINE [Concomitant]
     Indication: PAIN
     Dosage: 30 MG EVERY 1 PRN
     Route: 048
  14. BISOPROLOL FUMARATE [Concomitant]
     Route: 048
  15. ARA-C [Suspect]
     Dosage: UNKNOWN
     Dates: start: 20090810

REACTIONS (2)
  - LOWER RESPIRATORY TRACT INFECTION [None]
  - SUBDURAL HAEMORRHAGE [None]
